FAERS Safety Report 5825112-7 (Version None)
Quarter: 2008Q3

REPORT INFORMATION
  Report Type: 
  Country: None (occurrence: None)
  Receive Date: 20080725
  Receipt Date: 20080725
  Transmission Date: 20090109
  Serious: No
  Sender: FDA-Public Use
  Company Number: None

PATIENT
  Sex: Female
  Weight: 69 kg

DRUGS (1)
  1. PENICILLIN VK [Suspect]
     Indication: INFECTION
     Dosage: 500MG EVERY 6 HR ORAL
     Route: 048
     Dates: start: 20080707, end: 20080708

REACTIONS (1)
  - DRUG HYPERSENSITIVITY [None]
